FAERS Safety Report 9614909 (Version 2)
Quarter: 2013Q4

REPORT INFORMATION
  Report Type: Spontaneous
  Country: US (occurrence: US)
  Receive Date: 20131011
  Receipt Date: 20131122
  Transmission Date: 20140711
  Serious: No
  Sender: FDA-Public Use
  Company Number: US-PFIZER INC-2013288401

PATIENT
  Sex: Female

DRUGS (1)
  1. VERAPAMIL [Suspect]
     Dosage: 180 MG, 1X/DAY
     Route: 048

REACTIONS (1)
  - Urticaria [Recovered/Resolved]
